FAERS Safety Report 9571718 (Version 2)
Quarter: 2013Q4

REPORT INFORMATION
  Report Type: Spontaneous
  Country: US (occurrence: US)
  Receive Date: 20131001
  Receipt Date: 20131023
  Transmission Date: 20140711
  Serious: No
  Sender: FDA-Public Use
  Company Number: US-PFIZER INC-2013276931

PATIENT
  Age: 76 Year
  Sex: Male
  Weight: 93.42 kg

DRUGS (2)
  1. LYRICA [Suspect]
     Indication: PERIPHERAL NERVE INJURY
     Dosage: 50 MG, 2X/DAY
     Dates: start: 201307
  2. GABAPENTIN [Suspect]
     Dosage: 2400 MG, UNK

REACTIONS (1)
  - Drug ineffective [Unknown]
